FAERS Safety Report 12290254 (Version 4)
Quarter: 2017Q1

REPORT INFORMATION
  Report Type: Spontaneous
  Country: BE (occurrence: BE)
  Receive Date: 20160421
  Receipt Date: 20170331
  Transmission Date: 20170428
  Serious: Yes (Hospitalization, Other)
  Sender: FDA-Public Use
  Company Number: BE-ACTELION-A-CH2016-134354

PATIENT
  Age: 60 Year
  Sex: Male
  Weight: 108 kg

DRUGS (17)
  1. REVATIO [Suspect]
     Active Substance: SILDENAFIL CITRATE
     Indication: PULMONARY ARTERIAL HYPERTENSION
     Dosage: 60 MG, TID
     Route: 048
     Dates: start: 20090101
  2. SERLAIN [Concomitant]
     Active Substance: SERTRALINE HYDROCHLORIDE
     Dosage: 50 MG, QD
     Route: 048
  3. CONTRAMAL [Concomitant]
     Active Substance: TRAMADOL HYDROCHLORIDE
     Dosage: 50 MG, PRN
     Route: 048
  4. BURINEX [Concomitant]
     Active Substance: BUMETANIDE
     Indication: PULMONARY ARTERIAL HYPERTENSION
     Dosage: 10 MG, OD
     Route: 048
     Dates: start: 201511
  5. CORDARONE [Concomitant]
     Active Substance: AMIODARONE HYDROCHLORIDE
     Indication: CARDIAC FIBRILLATION
     Dosage: 200 MG, OD
     Route: 048
     Dates: start: 201511
  6. IMODIUM [Concomitant]
     Active Substance: LOPERAMIDE HYDROCHLORIDE
     Dosage: 10 MG, PRN
     Route: 048
  7. HYGROTON [Concomitant]
     Active Substance: CHLORTHALIDONE
     Indication: PULMONARY ARTERIAL HYPERTENSION
     Dosage: 50 MG, OD
     Route: 048
     Dates: start: 201511
  8. STILNOCT [Concomitant]
     Active Substance: ZOLPIDEM TARTRATE
     Dosage: 10 MG, UNK
     Route: 048
  9. VELETRI [Suspect]
     Active Substance: EPOPROSTENOL
     Dosage: 11 NG/KG, PER MIN
     Route: 042
     Dates: start: 20160124, end: 20160315
  10. TEARS NATURAL [Concomitant]
     Dosage: UNK, BID
  11. VELETRI [Suspect]
     Active Substance: EPOPROSTENOL
     Indication: PULMONARY ARTERIAL HYPERTENSION
     Dosage: 2 NG/KG, PER MIN
     Route: 042
     Dates: start: 20151030
  12. ALDACTONE [Concomitant]
     Active Substance: SPIRONOLACTONE
     Indication: PULMONARY ARTERIAL HYPERTENSION
     Dosage: 25 MG, OD
     Route: 048
     Dates: start: 201511
  13. PANTOMED [Concomitant]
     Active Substance: DEXPANTHENOL
     Dosage: 40 MG, UNK
     Route: 048
  14. INNOHEP [Concomitant]
     Active Substance: TINZAPARIN SODIUM
     Dosage: 18000 UNK, UNK
     Route: 058
  15. MAGNECAPS [Concomitant]
     Dosage: UNK, OD
     Route: 048
  16. NATRIUM BICARBONAT BRAUN [Concomitant]
     Dosage: 2 G, TID
     Route: 048
  17. TRACLEER [Suspect]
     Active Substance: BOSENTAN
     Indication: PULMONARY ARTERIAL HYPERTENSION
     Dosage: 125 MG, BID
     Route: 048
     Dates: start: 20090101, end: 201511

REACTIONS (4)
  - Headache [Recovered/Resolved]
  - Nausea [Recovered/Resolved]
  - Product reconstitution issue [Not Recovered/Not Resolved]
  - Muscle spasms [Recovered/Resolved]

NARRATIVE: CASE EVENT DATE: 20151101
